FAERS Safety Report 25815287 (Version 1)
Quarter: 2025Q3

REPORT INFORMATION
  Report Type: Spontaneous
  Country: SG (occurrence: SG)
  Receive Date: 20250918
  Receipt Date: 20250918
  Transmission Date: 20251020
  Serious: Yes (Other)
  Sender: JOHNSON AND JOHNSON
  Company Number: SG-JNJFOC-20250916581

PATIENT
  Age: 13 Year
  Sex: Female

DRUGS (1)
  1. ITRACONAZOLE [Suspect]
     Active Substance: ITRACONAZOLE
     Indication: Tinea versicolour
     Route: 048
     Dates: start: 20250811, end: 20250819

REACTIONS (1)
  - Colour blindness [Not Recovered/Not Resolved]

NARRATIVE: CASE EVENT DATE: 20250814
